FAERS Safety Report 8582531-6 (Version None)
Quarter: 2012Q3

REPORT INFORMATION
  Report Type: 
  Country: None (occurrence: None)
  Receive Date: 20120809
  Receipt Date: 20120803
  Transmission Date: 20120928
  Serious: Yes (Other)
  Sender: FDA-Public Use
  Company Number: FR-CELGENEUS-056-21880-12062225

PATIENT
  Sex: Female
  Weight: 110 kg

DRUGS (13)
  1. REVLIMID [Suspect]
     Indication: DIFFUSE LARGE B-CELL LYMPHOMA
     Dosage: 25 MILLIGRAM
     Route: 048
     Dates: start: 20100624, end: 20100714
  2. REVLIMID [Suspect]
     Route: 048
     Dates: start: 20101106, end: 20101224
  3. RITUXIMAB [Concomitant]
     Indication: LYMPHOMA
     Route: 065
     Dates: start: 20091218, end: 20100518
  4. REVLIMID [Suspect]
     Route: 048
     Dates: start: 20100730, end: 20100816
  5. REVLIMID [Suspect]
     Route: 048
     Dates: start: 20110103, end: 20110227
  6. METFOMINE [Concomitant]
     Dosage: 1 GRAM
     Route: 065
  7. ATENOLOL [Concomitant]
     Dosage: 25 MILLIGRAM
     Route: 065
  8. DOXORUBICIN HYDROCHLORIDE [Concomitant]
     Indication: LYMPHOMA
     Route: 065
     Dates: start: 20091218, end: 20100518
  9. VINCRISTINE [Concomitant]
     Indication: LYMPHOMA
     Route: 065
     Dates: start: 20091218, end: 20100518
  10. GLYBURIDE [Concomitant]
     Dosage: 1.25 MILLIGRAM
     Route: 065
  11. REVLIMID [Suspect]
     Route: 048
     Dates: start: 20101002, end: 20101022
  12. CYCLOPHOSPHAMIDE [Concomitant]
     Indication: LYMPHOMA
     Route: 065
     Dates: start: 20091221, end: 20100518
  13. PREDNISOLONE [Concomitant]
     Indication: LYMPHOMA
     Route: 065
     Dates: start: 20091218, end: 20100518

REACTIONS (1)
  - MYELODYSPLASTIC SYNDROME [None]
